FAERS Safety Report 4781831-5 (Version None)
Quarter: 2005Q3

REPORT INFORMATION
  Report Type: 
  Country: None (occurrence: None)
  Receive Date: 20050928
  Receipt Date: 20050407
  Transmission Date: 20060218
  Serious: Yes (Hospitalization)
  Sender: FDA-Public Use
  Company Number: CA-ABBOTT-05P-028-0296871-00

PATIENT
  Sex: Female

DRUGS (13)
  1. RITONAVIR SOFT GELATIN CAPSULES [Suspect]
     Indication: HIV INFECTION
     Route: 048
     Dates: start: 20030905, end: 20031120
  2. RITONAVIR SOFT GELATIN CAPSULES [Suspect]
  3. ATAZANAVIR [Suspect]
     Indication: HIV INFECTION
     Route: 048
     Dates: start: 20030905, end: 20031120
  4. DIDANOSINE [Suspect]
     Indication: HIV INFECTION
     Dates: start: 20030905, end: 20031120
  5. LAMIVUDINE [Suspect]
     Indication: HIV INFECTION
     Route: 048
     Dates: start: 20030905, end: 20031120
  6. LAMIVUDINE [Suspect]
     Dates: start: 20040401
  7. CELECOXIB [Suspect]
     Indication: DRUG USE FOR UNKNOWN INDICATION
     Dates: start: 20030922, end: 20031120
  8. CYCLOBENZAPRINE HCL [Suspect]
     Indication: DRUG USE FOR UNKNOWN INDICATION
     Dates: start: 20030920
  9. EFAVIRENZ [Concomitant]
     Indication: DRUG USE FOR UNKNOWN INDICATION
     Dates: start: 20031211, end: 20040402
  10. VALGANCICLOVIR [Concomitant]
     Indication: DRUG USE FOR UNKNOWN INDICATION
     Dates: start: 20031001
  11. TENOFOVIR [Concomitant]
     Indication: DRUG USE FOR UNKNOWN INDICATION
     Dates: start: 20031211
  12. KALETRA [Concomitant]
     Indication: DRUG USE FOR UNKNOWN INDICATION
  13. KALETRA [Concomitant]
     Dates: start: 20040402

REACTIONS (13)
  - ACNE [None]
  - BLOOD BILIRUBIN INCREASED [None]
  - CHOLELITHIASIS [None]
  - FATIGUE [None]
  - HEPATITIS [None]
  - JAUNDICE [None]
  - MALAISE [None]
  - MYCOBACTERIUM AVIUM COMPLEX INFECTION [None]
  - NAUSEA [None]
  - NECROTISING GRANULOMATOUS LYMPHADENITIS [None]
  - PERIARTHRITIS [None]
  - PYREXIA [None]
  - ROSACEA [None]
